FAERS Safety Report 11365283 (Version 1)
Quarter: 2015Q3

REPORT INFORMATION
  Report Type: Spontaneous
  Country: US (occurrence: US)
  Receive Date: 20150811
  Receipt Date: 20150811
  Transmission Date: 20151125
  Serious: No
  Sender: FDA-Public Use
  Company Number: US-BAYER-2015-397433

PATIENT
  Age: 71 Year
  Sex: Male
  Weight: 77.98 kg

DRUGS (3)
  1. LOTRIMIN ULTRA ANTIFUNGAL [Suspect]
     Active Substance: BUTENAFINE HYDROCHLORIDE
     Indication: ONYCHOMYCOSIS
     Dosage: 1 DF, 2-3 TIMES QD
     Route: 061
     Dates: start: 20150803, end: 20150804
  2. BABY ASPIRIN [Concomitant]
     Active Substance: ASPIRIN
     Dosage: UNK
  3. CHONDROITIN W/GLUCOSAMINE [Concomitant]
     Dosage: UNK

REACTIONS (2)
  - Product use issue [Unknown]
  - Product use issue [None]

NARRATIVE: CASE EVENT DATE: 20150803
